FAERS Safety Report 8386322-0 (Version None)
Quarter: 2012Q2

REPORT INFORMATION
  Report Type: 
  Country: None (occurrence: None)
  Receive Date: 20120525
  Receipt Date: 20120305
  Transmission Date: 20120825
  Serious: No
  Sender: FDA-Public Use
  Company Number: US-VERTEX PHARMACEUTICALS INC.-AE-2012-003201

PATIENT
  Age: 6 Year
  Sex: Female

DRUGS (7)
  1. ZANTAC [Concomitant]
  2. MONISTAT [Concomitant]
  3. SODIUM CHLORIDE CONCENTRATED INJ [Concomitant]
  4. PANCREATIC ENZYME [Concomitant]
  5. PULMOZYME [Concomitant]
  6. KALYDECO [Suspect]
     Indication: CYSTIC FIBROSIS
     Route: 048
     Dates: start: 20120303
  7. ALBUTEROL [Concomitant]

REACTIONS (4)
  - RASH PRURITIC [None]
  - RASH ERYTHEMATOUS [None]
  - VAGINAL DISCHARGE [None]
  - ERYTHEMA [None]
